FAERS Safety Report 9781152 (Version 3)
Quarter: 2014Q1

REPORT INFORMATION
  Report Type: Spontaneous
  Country: US (occurrence: None)
  Receive Date: 20131220
  Receipt Date: 20140312
  Transmission Date: 20141002
  Serious: Yes (Hospitalization, Other)
  Sender: FDA-Public Use
  Company Number: CPS-2013-0037

PATIENT
  Age: 55 Year
  Sex: Female
  Weight: 68 kg

DRUGS (8)
  1. LIOTHYRONINE SODIUM [Suspect]
     Indication: THYROID DISORDER
     Dosage: 25 MCG (FIVE 5 MCG TABLETS), QD, PO
     Route: 048
     Dates: start: 20130205, end: 20130415
  2. LIOTHYRONINE SODIUM [Suspect]
     Indication: TREMOR
     Dosage: 25 MCG (FIVE 5 MCG TABLETS), QD, PO
     Route: 048
     Dates: start: 20130205, end: 20130415
  3. LIOTHYRONINE SODIUM [Suspect]
     Indication: CONVULSION
     Dosage: 25 MCG (FIVE 5 MCG TABLETS), QD, PO
     Route: 048
     Dates: start: 20130205, end: 20130415
  4. LITHIUM (LITHIUM) [Concomitant]
  5. TRAZODONE (TRAZODONE) [Concomitant]
  6. SYNTHROID (LEVOTHYROXINE SODIUM) [Concomitant]
  7. ZEMPLAR (PARICALCITOL) [Concomitant]
  8. MEDICATIONS FOR TREMORS (MEDICATIONS FOR TREMORS) [Concomitant]

REACTIONS (28)
  - Cerebrovascular accident [None]
  - Dysarthria [None]
  - Abasia [None]
  - Convulsion [None]
  - Hypotension [None]
  - Heart rate decreased [None]
  - Hypoaesthesia [None]
  - Amnesia [None]
  - Amnesia [None]
  - Headache [None]
  - Loss of consciousness [None]
  - Heart rate irregular [None]
  - Confusional state [None]
  - Hypoaesthesia [None]
  - Hypoaesthesia [None]
  - Cerebral atrophy [None]
  - Bradycardia [None]
  - Drug interaction [None]
  - Myocardial infarction [None]
  - Pain [None]
  - Musculoskeletal pain [None]
  - Depression [None]
  - Anxiety [None]
  - Psychotic disorder [None]
  - Urinary tract infection [None]
  - Pain in extremity [None]
  - Gastrointestinal disorder [None]
  - Microangiopathy [None]
